FAERS Safety Report 6620119-4 (Version None)
Quarter: 2010Q1

REPORT INFORMATION
  Report Type: 
  Country: None (occurrence: None)
  Receive Date: 20100309
  Receipt Date: 20100303
  Transmission Date: 20100710
  Serious: Yes (Death)
  Sender: FDA-Public Use
  Company Number: US-GILEAD-2010-0027490

PATIENT
  Sex: Female
  Weight: 61.29 kg

DRUGS (6)
  1. LETAIRIS [Suspect]
     Indication: PULMONARY ARTERIAL HYPERTENSION
     Route: 048
     Dates: start: 20080312
  2. LASIX [Concomitant]
  3. LANOXIN [Concomitant]
  4. ALDACTONE [Concomitant]
  5. REVATIO [Concomitant]
  6. MULTI-VITAMINS [Concomitant]

REACTIONS (1)
  - DEATH [None]
